FAERS Safety Report 9834694 (Version 1)
Quarter: 2014Q1

REPORT INFORMATION
  Report Type: Spontaneous
  Country: DK (occurrence: DK)
  Receive Date: 20140122
  Receipt Date: 20140122
  Transmission Date: 20141002
  Serious: Yes (Other)
  Sender: FDA-Public Use
  Company Number: DK-UCBSA-109042

PATIENT
  Sex: Female

DRUGS (2)
  1. KEPPRA [Suspect]
  2. FRISIUM [Concomitant]
     Dosage: 5 MG

REACTIONS (1)
  - Atrioventricular block [Not Recovered/Not Resolved]
